FAERS Safety Report 21302663 (Version 1)
Quarter: 2022Q3

REPORT INFORMATION
  Report Type: Spontaneous
  Country: US (occurrence: US)
  Receive Date: 20220907
  Receipt Date: 20220907
  Transmission Date: 20221026
  Serious: No
  Sender: FDA-Public Use
  Company Number: US-BoehringerIngelheim-2022-BI-190595

PATIENT

DRUGS (4)
  1. JARDIANCE [Suspect]
     Active Substance: EMPAGLIFLOZIN
     Indication: Product used for unknown indication
  2. LEVEMIR [Concomitant]
     Active Substance: INSULIN DETEMIR
     Indication: Product used for unknown indication
  3. HUMALOG [Concomitant]
     Active Substance: INSULIN LISPRO
     Indication: Product used for unknown indication
     Dosage: 100U/ML 10ML VIAL
  4. JANUVIA [Concomitant]
     Active Substance: SITAGLIPTIN PHOSPHATE
     Indication: Product used for unknown indication
     Dosage: Y 0.75MG/0.5ML PEN

REACTIONS (1)
  - Fungal infection [Unknown]
